FAERS Safety Report 21918364 (Version 1)
Quarter: 2023Q1

REPORT INFORMATION
  Report Type: Spontaneous
  Country: DE (occurrence: DE)
  Receive Date: 20230127
  Receipt Date: 20230127
  Transmission Date: 20230418
  Serious: Yes (Other)
  Sender: FDA-Public Use
  Company Number: None

PATIENT
  Age: 55 Year
  Sex: Male
  Weight: 80 kg

DRUGS (2)
  1. AMOXICILLIN [Suspect]
     Active Substance: AMOXICILLIN
     Indication: Pulpitis dental
     Dosage: 3X 1 TABLET
     Dates: start: 20221224, end: 20221229
  2. AMOXICILLIN [Suspect]
     Active Substance: AMOXICILLIN
     Indication: Endodontic procedure

REACTIONS (6)
  - Haemorrhage [Recovering/Resolving]
  - Soft tissue haemorrhage [Recovering/Resolving]
  - Mobility decreased [Recovering/Resolving]
  - Skin swelling [Recovering/Resolving]
  - Pain [Recovering/Resolving]
  - Myalgia [Recovering/Resolving]

NARRATIVE: CASE EVENT DATE: 20221227
